FAERS Safety Report 12712773 (Version 9)
Quarter: 2017Q4

REPORT INFORMATION
  Report Type: Report from Study
  Country: US (occurrence: US)
  Receive Date: 20160902
  Receipt Date: 20171228
  Transmission Date: 20180320
  Serious: Yes (Hospitalization, Other)
  Sender: FDA-Public Use
  Company Number: US-SAOL THERAPEUTICS-2016SAO00520

PATIENT
  Age: 23 Year
  Sex: Female
  Weight: 39.91 kg

DRUGS (9)
  1. LIORESAL [Suspect]
     Active Substance: BACLOFEN
     Indication: CEREBRAL PALSY
     Dosage: 175.2 ?G, \DAY
     Route: 037
     Dates: start: 20170503, end: 20170516
  2. LIORESAL [Suspect]
     Active Substance: BACLOFEN
     Indication: MUSCLE SPASTICITY
     Dosage: 100.14 ?G, \DAY
     Dates: start: 20160802, end: 201608
  3. LIORESAL [Suspect]
     Active Substance: BACLOFEN
     Dosage: 124.91 ?G, \DAY
     Dates: start: 20160809, end: 20160811
  4. BACTRIM [Concomitant]
     Active Substance: SULFAMETHOXAZOLE\TRIMETHOPRIM
     Dosage: UNK UNK, 1X/DAY
  5. CLONAZEPAM. [Concomitant]
     Active Substance: CLONAZEPAM
     Dosage: 0.25 MG, 1X/DAY
  6. OXYBUTYNIN CHLORIDE. [Concomitant]
     Active Substance: OXYBUTYNIN CHLORIDE
     Dosage: 5 MG, 3X/DAY
  7. LIORESAL [Suspect]
     Active Substance: BACLOFEN
     Indication: CEREBRAL PALSY
     Dosage: 49.96 ?G, \DAY
     Dates: start: 20160801, end: 20160802
  8. DIAZEPAM. [Concomitant]
     Active Substance: DIAZEPAM
     Dosage: 2 MG, 2X/DAY
  9. LIORESAL [Suspect]
     Active Substance: BACLOFEN
     Indication: MUSCLE SPASTICITY
     Dosage: 214.8 ?G, \DAY
     Route: 037
     Dates: start: 20170516

REACTIONS (9)
  - Implant site abscess [Recovered/Resolved]
  - Vomiting [Recovered/Resolved]
  - Sepsis [Recovered/Resolved]
  - Meningitis [Recovered/Resolved]
  - Nausea [Recovered/Resolved]
  - Neuralgia [Recovered/Resolved]
  - Headache [Recovered/Resolved]
  - Cerebrospinal fluid leakage [Recovered/Resolved]
  - Klebsiella infection [Recovered/Resolved]

NARRATIVE: CASE EVENT DATE: 201608
